FAERS Safety Report 10694920 (Version 3)
Quarter: 2015Q1

REPORT INFORMATION
  Report Type: Spontaneous
  Country: US (occurrence: US)
  Receive Date: 20150107
  Receipt Date: 20150325
  Transmission Date: 20150721
  Serious: No
  Sender: FDA-Public Use
  Company Number: US-009507513-1501USA001097

PATIENT
  Age: 90 Year
  Sex: Female

DRUGS (2)
  1. OXYTROL FOR WOMEN [Suspect]
     Active Substance: OXYBUTYNIN
     Indication: POLLAKIURIA
     Dosage: UNK, UNKNOWN
     Route: 062
  2. OXYTROL FOR WOMEN [Suspect]
     Active Substance: OXYBUTYNIN
     Indication: INCONTINENCE

REACTIONS (6)
  - Product closure removal difficult [Unknown]
  - Blood glucose increased [Unknown]
  - Faecal incontinence [Unknown]
  - Wrong technique in drug usage process [Unknown]
  - Product use issue [Unknown]
  - Drug effect incomplete [Unknown]
